FAERS Safety Report 16475644 (Version 2)
Quarter: 2023Q1

REPORT INFORMATION
  Report Type: Spontaneous
  Country: FR (occurrence: FR)
  Receive Date: 20190625
  Receipt Date: 20230112
  Transmission Date: 20230417
  Serious: Yes (Other)
  Sender: FDA-Public Use
  Company Number: None

PATIENT
  Age: 35 Year
  Sex: Male

DRUGS (4)
  1. PAROXETINE [Interacting]
     Active Substance: PAROXETINE
     Indication: Depression
     Dosage: 20 MILLIGRAM, QD
     Route: 048
     Dates: start: 2018
  2. PRIMAQUINE PHOSPHATE [Interacting]
     Active Substance: PRIMAQUINE PHOSPHATE
     Indication: Malaria
     Dosage: 30 MILLIGRAM, QD
     Route: 048
     Dates: start: 20190110, end: 20190123
  3. CHLOROQUINE [Suspect]
     Active Substance: CHLOROQUINE
     Indication: Product used for unknown indication
     Dosage: 700 MILLIGRAM
     Route: 065
     Dates: start: 20181219
  4. CHLOROQUINE [Suspect]
     Active Substance: CHLOROQUINE
     Dosage: 300 MILLIGRAM
     Route: 065
     Dates: start: 20181221

REACTIONS (8)
  - Plasmodium vivax infection [Recovering/Resolving]
  - Pyrexia [Recovering/Resolving]
  - Lymphopenia [Recovering/Resolving]
  - Dry skin [Recovering/Resolving]
  - Myalgia [Recovering/Resolving]
  - Headache [Recovering/Resolving]
  - Drug ineffective [Unknown]
  - Drug interaction [Unknown]

NARRATIVE: CASE EVENT DATE: 20190201
